FAERS Safety Report 10003955 (Version 1)
Quarter: 2014Q1

REPORT INFORMATION
  Report Type: Spontaneous
  Country: FR (occurrence: FR)
  Receive Date: 20140312
  Receipt Date: 20140312
  Transmission Date: 20141002
  Serious: Yes (Hospitalization)
  Sender: FDA-Public Use
  Company Number: FR-TEVA-467301ISR

PATIENT
  Age: 16 Year
  Sex: Female
  Weight: 35 kg

DRUGS (4)
  1. DOXORUBICIN TEVA [Suspect]
     Indication: LYMPHOMA
     Dosage: 60 MILLIGRAM DAILY;
     Route: 042
     Dates: start: 20120312
  2. MABTHERA [Suspect]
     Dosage: 450 MILLIGRAM DAILY;
     Route: 042
     Dates: start: 20120309
  3. ONCOVIN [Suspect]
     Indication: LYMPHOMA
     Dosage: 1.7 MILLIGRAM DAILY;
     Route: 042
     Dates: start: 20120312
  4. ENDOXAN [Suspect]
     Indication: LYMPHOMA
     Dosage: 900 MILLIGRAM DAILY;
     Route: 042
     Dates: start: 20120312

REACTIONS (3)
  - Hepatocellular injury [Recovering/Resolving]
  - Cholestasis [Recovering/Resolving]
  - Pyrexia [Unknown]
